FAERS Safety Report 12482157 (Version 3)
Quarter: 2016Q4

REPORT INFORMATION
  Report Type: Spontaneous
  Country: US (occurrence: US)
  Receive Date: 20160620
  Receipt Date: 20161209
  Transmission Date: 20170207
  Serious: Yes (Hospitalization, Other)
  Sender: FDA-Public Use
  Company Number: US-BAYER-2016-120781

PATIENT
  Age: 22 Year
  Sex: Female

DRUGS (3)
  1. MIRENA [Suspect]
     Active Substance: LEVONORGESTREL
     Dosage: 20 MCG/24HR, CONT
     Route: 015
     Dates: start: 20130111
  2. BACTRIM [Suspect]
     Active Substance: SULFAMETHOXAZOLE\TRIMETHOPRIM
  3. MIRENA [Suspect]
     Active Substance: LEVONORGESTREL

REACTIONS (28)
  - Noninfective oophoritis [None]
  - Pyrexia [None]
  - Vaginitis bacterial [None]
  - Injury [None]
  - Pelvic inflammatory disease [None]
  - Flank pain [None]
  - Ovarian disorder [None]
  - Ovarian cyst [None]
  - Vaginal haemorrhage [None]
  - Pyelonephritis [None]
  - Pneumonia [None]
  - Salpingitis [Recovered/Resolved]
  - Pelvic pain [None]
  - Pelvic discomfort [None]
  - Vomiting [None]
  - Constipation [None]
  - Dysuria [None]
  - Chlamydial cervicitis [None]
  - Leukocytosis [None]
  - Uterine perforation [None]
  - Vaginal infection [None]
  - Abdominal pain lower [None]
  - Ovarian enlargement [None]
  - Abdominal discomfort [None]
  - Nausea [None]
  - Vaginal discharge [None]
  - Pelvic infection [None]
  - Dyspnoea [None]

NARRATIVE: CASE EVENT DATE: 201303
